FAERS Safety Report 9871102 (Version 1)
Quarter: 2014Q1

REPORT INFORMATION
  Report Type: Spontaneous
  Country: US (occurrence: US)
  Receive Date: 20140205
  Receipt Date: 20140205
  Transmission Date: 20141002
  Serious: No
  Sender: FDA-Public Use
  Company Number: US-GILEAD-2013-0075220

PATIENT
  Age: 48 Year
  Sex: Male

DRUGS (10)
  1. STRIBILD [Suspect]
     Indication: PRODUCT USED FOR UNKNOWN INDICATION
     Dosage: 1 DF, QD
     Dates: start: 20130510
  2. PANTOPRAZOLE [Interacting]
     Indication: PRODUCT USED FOR UNKNOWN INDICATION
     Dosage: 40 MG, UNK
  3. LEXAPRO [Interacting]
     Indication: PRODUCT USED FOR UNKNOWN INDICATION
     Dosage: 5 MG, QD
  4. XANAX [Interacting]
     Indication: PRODUCT USED FOR UNKNOWN INDICATION
     Dosage: 0.5 MG, PRN
  5. TYLENOL /00020001/ [Interacting]
     Indication: PRODUCT USED FOR UNKNOWN INDICATION
  6. VITAMIN C /00008001/ [Interacting]
     Indication: PRODUCT USED FOR UNKNOWN INDICATION
  7. VITAMIN B [Interacting]
     Indication: PRODUCT USED FOR UNKNOWN INDICATION
  8. VITAMIN D /00107901/ [Interacting]
     Indication: PRODUCT USED FOR UNKNOWN INDICATION
  9. MULTIVITAMIN /00097801/ [Interacting]
     Indication: PRODUCT USED FOR UNKNOWN INDICATION
  10. SAW PALMETTO /00833501/ [Interacting]
     Indication: PRODUCT USED FOR UNKNOWN INDICATION

REACTIONS (3)
  - Blood pressure decreased [Not Recovered/Not Resolved]
  - Drug interaction [Not Recovered/Not Resolved]
  - Diarrhoea [Recovered/Resolved]
